FAERS Safety Report 6831637-8 (Version None)
Quarter: 2010Q3

REPORT INFORMATION
  Report Type: 
  Country: None (occurrence: None)
  Receive Date: 20100712
  Receipt Date: 20100708
  Transmission Date: 20110219
  Serious: Yes (Death)
  Sender: FDA-Public Use
  Company Number: PHHY2010US35016

PATIENT
  Sex: Female

DRUGS (2)
  1. RECLAST [Suspect]
     Indication: OSTEOPOROSIS
     Dosage: 5MG
     Route: 042
     Dates: start: 20080416
  2. RECLAST [Suspect]
     Dosage: 5MG
     Route: 042
     Dates: start: 20090609

REACTIONS (1)
  - DEATH [None]
